FAERS Safety Report 8444671-1 (Version None)
Quarter: 2012Q2

REPORT INFORMATION
  Report Type: 
  Country: None (occurrence: None)
  Receive Date: 20120618
  Receipt Date: 20120607
  Transmission Date: 20120825
  Serious: Yes (Other)
  Sender: FDA-Public Use
  Company Number: US-CELGENEUS-163-21880-12061007

PATIENT
  Sex: Male
  Weight: 83.354 kg

DRUGS (16)
  1. BACTRIM DS [Concomitant]
     Dosage: 1
     Route: 065
  2. IRON WITH VITAMIN C [Concomitant]
     Dosage: 2
     Route: 065
  3. RESVERATROL [Concomitant]
     Dosage: 250 MILLIGRAM
     Route: 065
  4. OMEGA RED KRILL OIL [Concomitant]
     Dosage: 1
     Route: 065
  5. VITAMIN D [Concomitant]
     Dosage: 1000 IU (INTERNATIONAL UNIT)
     Route: 065
  6. CURCUMIN C3 COMPLEX WITH BIOPERINE [Concomitant]
     Dosage: 500 MICROGRAM
     Route: 065
  7. DEXAMETHASONE [Concomitant]
     Dosage: 20 MILLIGRAM
     Route: 065
  8. ALLEGRA [Concomitant]
     Dosage: 1
     Route: 065
  9. REVLIMID [Suspect]
     Indication: MULTIPLE MYELOMA
     Dosage: 15 MILLIGRAM
     Route: 048
     Dates: start: 20120301
  10. MULTI-VITAMINS [Concomitant]
     Route: 065
  11. VITAMIN B6 [Concomitant]
     Dosage: 100 MILLIGRAM
     Route: 065
  12. VELCADE [Concomitant]
     Route: 058
  13. PRILOSEC [Concomitant]
     Dosage: 60 MILLIGRAM
     Route: 065
  14. VITAMIN B-12 [Concomitant]
     Dosage: 1000 MICROGRAM
     Route: 065
  15. ACYCLOVIR [Concomitant]
     Route: 065
  16. ZOLODRONIC ACID [Concomitant]
     Dosage: 4 MILLIGRAM
     Route: 065

REACTIONS (5)
  - FATIGUE [None]
  - UPPER RESPIRATORY TRACT INFECTION [None]
  - ORAL PAIN [None]
  - PLATELET COUNT DECREASED [None]
  - HAEMORRHAGE [None]
